FAERS Safety Report 9696792 (Version 2)
Quarter: 2013Q4

REPORT INFORMATION
  Report Type: Spontaneous
  Country: US (occurrence: US)
  Receive Date: 20131119
  Receipt Date: 20131119
  Transmission Date: 20140711
  Serious: No
  Sender: FDA-Public Use
  Company Number: US-GILEAD-2007-0014339

PATIENT
  Sex: Male

DRUGS (7)
  1. LETAIRIS [Suspect]
     Indication: PULMONARY ARTERIAL HYPERTENSION
  2. LASIX [Concomitant]
  3. METOLAZONE [Concomitant]
  4. METOPROLOL [Concomitant]
  5. DILTIAZEM [Concomitant]
  6. GABAPENTIN [Concomitant]
  7. VICODIN [Concomitant]

REACTIONS (2)
  - Rash [Recovered/Resolved]
  - Local swelling [Recovered/Resolved]
